FAERS Safety Report 8283506-7 (Version None)
Quarter: 2012Q2

REPORT INFORMATION
  Report Type: 
  Country: None (occurrence: None)
  Receive Date: 20120413
  Receipt Date: 20120411
  Transmission Date: 20120825
  Serious: Yes (Death, Hospitalization)
  Sender: FDA-Public Use
  Company Number: GXKR2010US04491

PATIENT
  Age: 50 Year
  Sex: Male

DRUGS (2)
  1. PROPYLENE GLYCOL [Suspect]
     Dosage: 2 MG/MIN DURING 10 HOURS
     Route: 040
  2. LORAZEPAM [Suspect]
     Indication: GRAND MAL CONVULSION
     Dosage: 2 MG/MIN DURING 10 HOURS
     Route: 040

REACTIONS (6)
  - RENAL FAILURE [None]
  - LACTIC ACIDOSIS [None]
  - RENAL TUBULAR NECROSIS [None]
  - ACCIDENTAL OVERDOSE [None]
  - ACIDOSIS [None]
  - HYPOTENSION [None]
